FAERS Safety Report 21571663 (Version 1)
Quarter: 2022Q4

REPORT INFORMATION
  Report Type: Spontaneous
  Country: US (occurrence: None)
  Receive Date: 20221107
  Receipt Date: 20221107
  Transmission Date: 20230113
  Serious: Yes (Hospitalization)
  Sender: FDA-Public Use
  Company Number: None

PATIENT
  Age: 64 Year
  Sex: Male

DRUGS (1)
  1. PEMBROLIZUMAB [Suspect]
     Active Substance: PEMBROLIZUMAB
     Indication: Lung adenocarcinoma
     Route: 042
     Dates: start: 20220228, end: 20220330

REACTIONS (5)
  - Acute kidney injury [None]
  - Angina pectoris [None]
  - Blood creatinine increased [None]
  - Pericardial effusion [None]
  - Autoimmune arthritis [None]

NARRATIVE: CASE EVENT DATE: 20220330
